FAERS Safety Report 5986282-3 (Version None)
Quarter: 2008Q4

REPORT INFORMATION
  Report Type: 
  Country: None (occurrence: None)
  Receive Date: 20081209
  Receipt Date: 20081201
  Transmission Date: 20090506
  Serious: Yes (Disabling, Other)
  Sender: FDA-Public Use
  Company Number: US-ROCHE-589807

PATIENT
  Sex: Female
  Weight: 51.7 kg

DRUGS (5)
  1. BONIVA [Suspect]
     Indication: DRUG USE FOR UNKNOWN INDICATION
     Dosage: SECOND DOSE IN MARCH 2008
     Route: 042
     Dates: start: 20070925, end: 20080625
  2. SINGULAIR [Concomitant]
     Route: 048
  3. VYTORIN [Concomitant]
     Dosage: STRENGTH: 10-20
     Route: 048
  4. INSULIN [Concomitant]
     Dosage: FORM: PUMP
     Route: 048
  5. ASPIRIN [Concomitant]
     Route: 048

REACTIONS (4)
  - ARTHRALGIA [None]
  - HIP ARTHROPLASTY [None]
  - MUSCULOSKELETAL PAIN [None]
  - PAIN IN EXTREMITY [None]
